FAERS Safety Report 7641429-8 (Version None)
Quarter: 2011Q3

REPORT INFORMATION
  Report Type: 
  Country: None (occurrence: None)
  Receive Date: 20110727
  Receipt Date: 20110727
  Transmission Date: 20111222
  Serious: Yes (Other)
  Sender: FDA-Public Use
  Company Number: None

PATIENT
  Age: 61 Year
  Sex: Female
  Weight: 70.7611 kg

DRUGS (7)
  1. ALPHA LIPORIC ACID [Concomitant]
  2. LOTREL [Concomitant]
  3. CENTRUM SILVER VIT [Concomitant]
  4. VIATIN CHEWS [Concomitant]
  5. AMLODIPINE BESYLATE AND BENAZEPRIL HCL [Suspect]
     Indication: HYPERTENSION
     Dosage: 1 2.5/10 MG CAP DAILY MOUTH
     Route: 048
     Dates: start: 20101216, end: 20101230
  6. METOPROLOL TARTRATE [Concomitant]
  7. ASPIRIN [Concomitant]

REACTIONS (8)
  - MIGRAINE [None]
  - HEADACHE [None]
  - EAR PAIN [None]
  - TREMOR [None]
  - MUCOSAL INFLAMMATION [None]
  - EYE PRURITUS [None]
  - DRY EYE [None]
  - STOMATITIS [None]
